FAERS Safety Report 12336924 (Version 1)
Quarter: 2016Q2

REPORT INFORMATION
  Report Type: Spontaneous
  Country: US (occurrence: None)
  Receive Date: 20160504
  Receipt Date: 20160504
  Transmission Date: 20160815
  Serious: No
  Sender: FDA-Public Use
  Company Number: None

PATIENT
  Age: 78 Year
  Sex: Female
  Weight: 53.52 kg

DRUGS (1)
  1. RANITIDINE 150 MGM, 1 TABLET DAILY GLENMARK-SUBSTITUTE FOR ZANTAC [Suspect]
     Active Substance: RANITIDINE HYDROCHLORIDE
     Indication: GASTROOESOPHAGEAL REFLUX DISEASE
     Route: 048

REACTIONS (4)
  - Memory impairment [None]
  - Nephrolithiasis [None]
  - Pain [None]
  - Feeling abnormal [None]

NARRATIVE: CASE EVENT DATE: 20151010
